FAERS Safety Report 10917592 (Version 2)
Quarter: 2016Q4

REPORT INFORMATION
  Report Type: Spontaneous
  Country: CH (occurrence: CH)
  Receive Date: 20150316
  Receipt Date: 20161026
  Transmission Date: 20170206
  Serious: Yes (Disabling, Other)
  Sender: FDA-Public Use
  Company Number: CH-BAYER-2015-035355

PATIENT
  Sex: Female

DRUGS (1)
  1. BETAFERON [Suspect]
     Active Substance: INTERFERON BETA-1B
     Indication: MULTIPLE SCLEROSIS
     Dosage: 250 ?G, QOD
     Route: 058
     Dates: start: 200601

REACTIONS (4)
  - Urinary tract infection [Recovered/Resolved]
  - Injection site erythema [None]
  - Gait disturbance [Not Recovered/Not Resolved]
  - Injection site induration [None]
